FAERS Safety Report 9350299 (Version 3)
Quarter: 2013Q3

REPORT INFORMATION
  Report Type: Report from Study
  Country: US (occurrence: US)
  Receive Date: 20130617
  Receipt Date: 20130712
  Transmission Date: 20140515
  Serious: Yes (Hospitalization)
  Sender: FDA-Public Use
  Company Number: US-CELGENEUS-163-21660-13061203

PATIENT
  Age: 56 Year
  Sex: Male
  Weight: 76.09 kg

DRUGS (18)
  1. ABRAXANE [Suspect]
     Indication: LUNG NEOPLASM MALIGNANT
     Dosage: 50 MILLIGRAM/SQ. METER
     Route: 065
     Dates: start: 20130517
  2. ABRAXANE [Suspect]
     Route: 065
     Dates: start: 20130531, end: 20130604
  3. CARBOPLATIN [Suspect]
     Indication: LUNG NEOPLASM MALIGNANT
     Dosage: AUC
     Route: 065
     Dates: start: 20130517
  4. FLAGYL [Concomitant]
     Indication: CLOSTRIDIUM DIFFICILE INFECTION
     Route: 048
     Dates: start: 201305
  5. FLUID [Concomitant]
     Indication: PRODUCT USED FOR UNKNOWN INDICATION
     Route: 041
  6. ANTIBIOTICS [Concomitant]
     Indication: PNEUMONIA
     Route: 065
  7. MORPHINE [Concomitant]
     Indication: PRODUCT USED FOR UNKNOWN INDICATION
     Route: 065
  8. HYDROCODONE [Concomitant]
     Indication: PRODUCT USED FOR UNKNOWN INDICATION
     Route: 065
  9. POTASSIUM CHLORIDE [Concomitant]
     Indication: PRODUCT USED FOR UNKNOWN INDICATION
     Dosage: 20 MILLIEQUIVALENTS
     Route: 065
  10. DEXAMETHASONE [Concomitant]
     Indication: PRODUCT USED FOR UNKNOWN INDICATION
     Dosage: 8 MILLIGRAM
     Route: 048
  11. PHENERGAN [Concomitant]
     Indication: PRODUCT USED FOR UNKNOWN INDICATION
     Route: 065
  12. BENADRYL [Concomitant]
     Indication: PRODUCT USED FOR UNKNOWN INDICATION
     Route: 065
  13. ASPIRIN [Concomitant]
     Indication: PRODUCT USED FOR UNKNOWN INDICATION
     Dosage: 325 MILLIGRAM
     Route: 048
  14. CEFTIN [Concomitant]
     Indication: PRODUCT USED FOR UNKNOWN INDICATION
     Dosage: 1000 MILLIGRAM
     Route: 048
  15. VICODIN [Concomitant]
     Indication: PAIN
     Dosage: 5/500MG (1-2 TAB)
     Route: 048
  16. CLARITIN [Concomitant]
     Indication: PRODUCT USED FOR UNKNOWN INDICATION
     Dosage: 10 MILLIGRAM
     Route: 048
  17. MS CONTIN [Concomitant]
     Indication: PAIN
     Dosage: 30 MILLIGRAM
     Route: 048
  18. COMPAZINE [Concomitant]
     Indication: NAUSEA
     Dosage: 40 MILLIGRAM
     Route: 048

REACTIONS (4)
  - Atrial fibrillation [Not Recovered/Not Resolved]
  - Atrial fibrillation [Recovered/Resolved with Sequelae]
  - Urinary tract infection [Recovered/Resolved]
  - Pyrexia [Recovered/Resolved]
